FAERS Safety Report 12632308 (Version 2)
Quarter: 2016Q3

REPORT INFORMATION
  Report Type: Spontaneous
  Country: US (occurrence: US)
  Receive Date: 20160808
  Receipt Date: 20160808
  Transmission Date: 20161109
  Serious: No
  Sender: FDA-Public Use
  Company Number: US-BEH-2016062372

PATIENT
  Age: 63 Year
  Sex: Female
  Weight: 94 kg

DRUGS (18)
  1. ACETAMINOPHEN. [Concomitant]
     Active Substance: ACETAMINOPHEN
  2. DIPHENHYDRAMINE. [Concomitant]
     Active Substance: DIPHENHYDRAMINE
  3. RETINA [Concomitant]
  4. NASONEX [Concomitant]
     Active Substance: MOMETASONE FUROATE
  5. LEVOCETIRIZINE [Concomitant]
     Active Substance: LEVOCETIRIZINE
  6. RANITIDINE. [Concomitant]
     Active Substance: RANITIDINE
  7. ORACEA [Concomitant]
     Active Substance: DOXYCYCLINE
  8. MICARDIS [Concomitant]
     Active Substance: TELMISARTAN
  9. EPIPEN [Concomitant]
     Active Substance: EPINEPHRINE
  10. PROAIR HFA [Concomitant]
     Active Substance: ALBUTEROL SULFATE
  11. TOPROL XL [Concomitant]
     Active Substance: METOPROLOL SUCCINATE
  12. TESSALON [Concomitant]
     Active Substance: BENZONATATE
  13. LEVOTHYROXINE. [Concomitant]
     Active Substance: LEVOTHYROXINE
  14. MUCINEX [Concomitant]
     Active Substance: GUAIFENESIN
  15. ALBUTEROL. [Concomitant]
     Active Substance: ALBUTEROL
  16. HIZENTRA [Suspect]
     Active Substance: HUMAN IMMUNOGLOBULIN G
     Indication: IMMUNODEFICIENCY COMMON VARIABLE
     Route: 058
     Dates: start: 20130903
  17. XZYAL [Concomitant]
  18. SINGULAIR [Concomitant]
     Active Substance: MONTELUKAST SODIUM

REACTIONS (1)
  - Urinary tract infection [Unknown]

NARRATIVE: CASE EVENT DATE: 201602
